FAERS Safety Report 22096206 (Version 1)
Quarter: 2023Q1

REPORT INFORMATION
  Report Type: Other
  Country: DE (occurrence: None)
  Receive Date: 20230315
  Receipt Date: 20230315
  Transmission Date: 20230418
  Serious: Yes (Death, Other)
  Sender: FDA-Public Use
  Company Number: DE-ROCHE-3304916

PATIENT
  Age: 78 Year
  Sex: Male

DRUGS (2)
  1. VEMURAFENIB [Suspect]
     Active Substance: VEMURAFENIB
     Indication: Thyroid cancer metastatic
     Route: 048
     Dates: start: 201405
  2. VEMURAFENIB [Suspect]
     Active Substance: VEMURAFENIB
     Route: 048

REACTIONS (5)
  - Drug resistance [Fatal]
  - Acute kidney injury [Unknown]
  - Dry skin [Unknown]
  - Eczema [Unknown]
  - Rash pustular [Unknown]
